FAERS Safety Report 24862218 (Version 2)
Quarter: 2025Q1

REPORT INFORMATION
  Report Type: Spontaneous
  Country: US (occurrence: US)
  Receive Date: 20250120
  Receipt Date: 20250224
  Transmission Date: 20250409
  Serious: Yes (Other)
  Sender: BRISTOL-MYERS SQUIBB COMPANY
  Company Number: US-BRISTOL-MYERS SQUIBB COMPANY-2025-005231

PATIENT
  Age: 57 Year
  Sex: Female
  Weight: 92.99 kg

DRUGS (35)
  1. REVLIMID [Suspect]
     Active Substance: LENALIDOMIDE
     Indication: Plasma cell myeloma
     Dosage: 1X21 DAYS
     Route: 048
     Dates: start: 20240201
  2. REVLIMID [Suspect]
     Active Substance: LENALIDOMIDE
     Dosage: TAKE ONE CAPSULE 10 MG BY MOUTH ONCE DAILY FOR 21 DAYS ON AND 7 DAYS OFF OF EACH 28 DAYS CYCLE
     Route: 048
  3. REVLIMID [Suspect]
     Active Substance: LENALIDOMIDE
     Dosage: TAKE ONE CAPSULE 10 MG BY MOUTH ONCE DAILY FOR 21 DAYS ON AND 7 DAYS OFF OF EACH 28 DAYS CYCLE
     Route: 048
  4. REVLIMID [Suspect]
     Active Substance: LENALIDOMIDE
     Dosage: TAKE ONE CAPSULE 10 MG BY MOUTH ONCE DAILY FOR 21 DAYS ON AND 7 DAYS OFF OF EACH 28 DAYS CYCLE
     Route: 048
  5. REVLIMID [Suspect]
     Active Substance: LENALIDOMIDE
     Dosage: TAKE ONE CAPSULE 10 MG BY MOUTH ONCE DAILY FOR 21 DAYS ON AND 7 DAYS OFF OF EACH 28 DAYS CYCLE
     Route: 048
  6. REVLIMID [Suspect]
     Active Substance: LENALIDOMIDE
     Dosage: TAKE ONE CAPSULE 10 MG BY MOUTH ONCE DAILY FOR 21 DAYS ON AND 7 DAYS OFF OF EACH 28 DAYS CYCLE
     Route: 048
  7. REVLIMID [Suspect]
     Active Substance: LENALIDOMIDE
     Dosage: TAKE ONE CAPSULE 10 MG BY MOUTH ONCE DAILY FOR 21 DAYS ON AND 7 DAYS OFF OF EACH 28 DAYS CYCLE
     Route: 048
  8. REVLIMID [Suspect]
     Active Substance: LENALIDOMIDE
     Dosage: TAKE ONE CAPSULE 10 MG BY MOUTH ONCE DAILY FOR 21 DAYS ON AND 7 DAYS OFF OF EACH 28 DAYS CYCLE
     Route: 048
  9. REVLIMID [Suspect]
     Active Substance: LENALIDOMIDE
     Dosage: TAKE ONE CAPSULE 10 MG BY MOUTH ONCE DAILY FOR 21 DAYS ON AND 7 DAYS OFF OF EACH 28 DAYS CYCLE
     Route: 048
  10. REVLIMID [Suspect]
     Active Substance: LENALIDOMIDE
     Dosage: TAKE ONE CAPSULE 10 MG BY MOUTH ONCE DAILY FOR 21 DAYS ON AND 7 DAYS OFF OF EACH 28 DAYS CYCLE
     Route: 048
  11. REVLIMID [Suspect]
     Active Substance: LENALIDOMIDE
     Dosage: TAKE ONE CAPSULE BY MOUTH ONCE DAILY FOR 21 DAYS ON AND 7 DAYS OFF OF EACH 28 DAYS CYCLE
     Route: 048
  12. REVLIMID [Suspect]
     Active Substance: LENALIDOMIDE
     Dosage: TAKE ONE CAPSULE 10 MG BY MOUTH ONCE DAILY FOR 21 DAYS ON AND 7 DAYS OFF OF EACH 28 DAYS CYCLE
     Route: 048
  13. REVLIMID [Suspect]
     Active Substance: LENALIDOMIDE
     Dosage: TAKE ONE CAPSULE 10 MG BY MOUTH ONCE DAILY FOR 21 DAYS ON AND 7 DAYS OFF OF EACH 28 DAYS CYCLE
     Route: 048
  14. REVLIMID [Suspect]
     Active Substance: LENALIDOMIDE
     Dosage: TAKE ONE CAPSULE 10 MG BY MOUTH ONCE DAILY FOR 21 DAYS ON AND 7 DAYS OFF OF EACH 28 DAYS CYCLE
     Route: 048
  15. REVLIMID [Suspect]
     Active Substance: LENALIDOMIDE
     Dosage: TAKE ONE CAPSULE 10 MG BY MOUTH ONCE DAILY FOR 21 DAYS ON AND 7 DAYS OFF OF EACH 28 DAYS CYCLE
     Route: 048
  16. REVLIMID [Suspect]
     Active Substance: LENALIDOMIDE
     Dosage: TAKE ONE CAPSULE 10 MG BY MOUTH ONCE DAILY FOR 21 DAYS ON AND 7 DAYS OFF OF EACH 28 DAYS CYCLE
     Route: 048
  17. REVLIMID [Suspect]
     Active Substance: LENALIDOMIDE
     Dosage: TAKE ONE CAPSULE 10 MG BY MOUTH ONCE DAILY FOR 21 DAYS ON AND 7 DAYS OFF OF EACH 28 DAYS CYCLE
     Route: 048
  18. REVLIMID [Suspect]
     Active Substance: LENALIDOMIDE
     Dosage: TAKE ONE CAPSULE 10 MG BY MOUTH ONCE DAILY FOR 21 DAYS ON AND 7 DAYS OFF OF EACH 28 DAYS CYCLE
     Route: 048
  19. REVLIMID [Suspect]
     Active Substance: LENALIDOMIDE
     Dosage: TAKE ONE CAPSULE 10 MG BY MOUTH ONCE DAILY FOR 21 DAYS ON AND 7 DAYS OFF OF EACH 28 DAYS CYCLE
     Route: 048
  20. REVLIMID [Suspect]
     Active Substance: LENALIDOMIDE
     Route: 048
     Dates: start: 20230403, end: 20241017
  21. REVLIMID [Suspect]
     Active Substance: LENALIDOMIDE
     Route: 048
     Dates: start: 20230310, end: 20241017
  22. REVLIMID [Suspect]
     Active Substance: LENALIDOMIDE
     Route: 048
     Dates: start: 20221102, end: 20241017
  23. REVLIMID [Suspect]
     Active Substance: LENALIDOMIDE
     Route: 048
     Dates: start: 20230713, end: 20241017
  24. REVLIMID [Suspect]
     Active Substance: LENALIDOMIDE
     Route: 048
     Dates: start: 20221006, end: 20241017
  25. REVLIMID [Suspect]
     Active Substance: LENALIDOMIDE
     Route: 048
     Dates: start: 20220908, end: 20241017
  26. REVLIMID [Suspect]
     Active Substance: LENALIDOMIDE
     Route: 048
     Dates: start: 20220812, end: 20241017
  27. REVLIMID [Suspect]
     Active Substance: LENALIDOMIDE
     Route: 048
     Dates: start: 20230210, end: 20241017
  28. REVLIMID [Suspect]
     Active Substance: LENALIDOMIDE
     Route: 048
     Dates: start: 20230106, end: 20241017
  29. REVLIMID [Suspect]
     Active Substance: LENALIDOMIDE
     Dosage: 21/28 CYCLE
     Route: 048
     Dates: start: 20241016
  30. NOVOLIN R [Concomitant]
     Active Substance: INSULIN HUMAN
     Indication: Product used for unknown indication
     Dates: start: 20241017
  31. OMEGA 3 [COLECALCIFEROL;DOCOSAHEXAENOIC ACID;EICOSAPENTAENOIC ACID;RET [Concomitant]
     Indication: Product used for unknown indication
     Dates: start: 20241017
  32. HYDROCHLOROTHIAZIDE [Concomitant]
     Active Substance: HYDROCHLOROTHIAZIDE
     Indication: Product used for unknown indication
     Dates: start: 20240104
  33. NOVOLOG [Concomitant]
     Active Substance: INSULIN ASPART
     Indication: Product used for unknown indication
     Dates: start: 20241017
  34. KRILL OIL OMEGA 3 [Concomitant]
     Indication: Product used for unknown indication
     Dates: start: 20240104, end: 20241017
  35. OMEPRAZOLE [Concomitant]
     Active Substance: OMEPRAZOLE
     Indication: Product used for unknown indication
     Dates: start: 20241017

REACTIONS (1)
  - Hypokalaemia [Not Recovered/Not Resolved]

NARRATIVE: CASE EVENT DATE: 20241203
